FAERS Safety Report 8358186-2 (Version None)
Quarter: 2012Q2

REPORT INFORMATION
  Report Type: 
  Country: None (occurrence: None)
  Receive Date: 20120514
  Receipt Date: 20120508
  Transmission Date: 20120825
  Serious: Yes (Hospitalization)
  Sender: FDA-Public Use
  Company Number: US-GLAXOSMITHKLINE-A0974184A

PATIENT
  Age: 71 Year
  Sex: Female

DRUGS (2)
  1. ZYRTEC [Concomitant]
  2. ADVAIR DISKUS 100/50 [Suspect]
     Indication: ASTHMA
     Route: 055
     Dates: start: 20070101

REACTIONS (4)
  - BLOOD PRESSURE INADEQUATELY CONTROLLED [None]
  - DRUG ADMINISTRATION ERROR [None]
  - ASTHMA [None]
  - DIABETES MELLITUS INADEQUATE CONTROL [None]
